FAERS Safety Report 8985483 (Version 1)
Quarter: 2012Q4

REPORT INFORMATION
  Report Type: 
  Country: SE (occurrence: SE)
  Receive Date: 20121226
  Receipt Date: 20121226
  Transmission Date: 20130627
  Serious: Yes (Hospitalization)
  Sender: FDA-Public Use
  Company Number: SE-SANOFI-AVENTIS-2012SA092397

PATIENT
  Age: 55 Year
  Sex: Male

DRUGS (2)
  1. LASIX RETARD [Suspect]
     Indication: CARDIAC FAILURE
     Route: 065
     Dates: end: 20120906
  2. SALURES [Suspect]
     Indication: CARDIAC FAILURE
     Route: 065
     Dates: end: 20120906

REACTIONS (3)
  - Chest pain [Recovered/Resolved]
  - Myalgia [Recovered/Resolved]
  - Hypokalaemia [Recovered/Resolved]
